FAERS Safety Report 15254598 (Version 1)
Quarter: 2018Q3

REPORT INFORMATION
  Report Type: Spontaneous
  Country: US (occurrence: US)
  Receive Date: 20180808
  Receipt Date: 20180808
  Transmission Date: 20181010
  Serious: No
  Sender: FDA-Public Use
  Company Number: US-TEVA-2018-US-938700

PATIENT
  Sex: Male

DRUGS (7)
  1. BUPROPION XI [Concomitant]
  2. AUSTEDO [Suspect]
     Active Substance: DEUTETRABENAZINE
     Indication: HUNTINGTON^S DISEASE
     Route: 048
     Dates: start: 201804
  3. OXYCODONE [Concomitant]
     Active Substance: OXYCODONE
  4. QUETIAPINE FUMARTE [Concomitant]
  5. FLUOXETINE [Concomitant]
     Active Substance: FLUOXETINE HYDROCHLORIDE
  6. AMOXICILLIN. [Concomitant]
     Active Substance: AMOXICILLIN
  7. PEG3350 [Concomitant]
     Active Substance: POLYETHYLENE GLYCOL 3350

REACTIONS (4)
  - Depressed mood [Unknown]
  - Aggression [Unknown]
  - Hallucination, auditory [Unknown]
  - Fatigue [Unknown]
